FAERS Safety Report 9014403 (Version 2)
Quarter: 2013Q4

REPORT INFORMATION
  Report Type: Spontaneous
  Country: GB (occurrence: GB)
  Receive Date: 20130115
  Receipt Date: 20131010
  Transmission Date: 20140711
  Serious: Yes (Hospitalization)
  Sender: FDA-Public Use
  Company Number: GB-WATSON-2012-23359

PATIENT
  Age: 36 Year
  Sex: Male
  Weight: 69 kg

DRUGS (1)
  1. CLARITHROMYCIN (UNKNOWN) [Suspect]
     Indication: PNEUMONIA
     Dosage: 500 MG, BID, FOR 7 DAY COURSE
     Route: 048
     Dates: start: 20121213, end: 20121216

REACTIONS (12)
  - Psychotic disorder [Recovering/Resolving]
  - Hypersensitivity [Recovering/Resolving]
  - Anxiety [Recovered/Resolved]
  - Confusional state [Recovered/Resolved]
  - Depression [Recovering/Resolving]
  - Nausea [Recovering/Resolving]
  - Insomnia [Not Recovered/Not Resolved]
  - Abnormal dreams [Not Recovered/Not Resolved]
  - Paraesthesia [Recovered/Resolved]
  - Dry mouth [Not Recovered/Not Resolved]
  - Anxiety [Recovering/Resolving]
  - Dissociation [Unknown]
